FAERS Safety Report 5347010-8 (Version None)
Quarter: 2007Q2

REPORT INFORMATION
  Report Type: 
  Country: None (occurrence: None)
  Receive Date: 20070604
  Receipt Date: 20070205
  Transmission Date: 20071010
  Serious: No
  Sender: FDA-Public Use
  Company Number: TPG2006A00629

PATIENT
  Age: 73 Year
  Sex: Male

DRUGS (4)
  1. LANSOPRAZOLE [Suspect]
     Indication: STOMACH DISCOMFORT
     Dosage: 15-30 (UNK., 1-2 CAPSULES PER DAY) PER ORAL
     Route: 048
     Dates: start: 20061020, end: 20061030
  2. ACETYLSALICYLIC ACID (ACETYLSALICYLIC ACID) (100 MILLIGRAM, TABLETS) [Concomitant]
  3. UBRETID (DISTIGMINE BROMIDE) (5 MILLIGRAM, TABLETS) [Concomitant]
  4. OMNIC OCAS (TAMSULOSIN HYDROCHLORIDE) (0.4 MILLIGRAM, TABLETS) [Concomitant]

REACTIONS (3)
  - HEADACHE [None]
  - VISION BLURRED [None]
  - VITREOUS OPACITIES [None]
